FAERS Safety Report 8615601-4 (Version None)
Quarter: 2012Q3

REPORT INFORMATION
  Report Type: 
  Country: None (occurrence: None)
  Receive Date: 20120823
  Receipt Date: 20120814
  Transmission Date: 20120928
  Serious: Yes (Hospitalization)
  Sender: FDA-Public Use
  Company Number: CA-JNJFOC-20120806764

PATIENT
  Sex: Female
  Weight: 97.07 kg

DRUGS (14)
  1. CYMBALTA [Concomitant]
     Route: 065
  2. VITAMIN B6 [Concomitant]
     Route: 065
  3. DEPO-PROVERA [Concomitant]
     Route: 030
  4. CYCLOBENZAPRINE [Concomitant]
     Route: 065
  5. VITAMINE E [Concomitant]
     Route: 065
  6. TRIAZIDE [Concomitant]
     Route: 065
  7. EVENING PRIMROSE OIL [Concomitant]
     Route: 065
  8. NAPROXEN [Concomitant]
     Route: 048
  9. ZOPICLONE [Concomitant]
     Route: 065
  10. NEXIUM [Concomitant]
     Route: 065
  11. BOTOX [Concomitant]
     Dosage: OF 3 MONTHS
     Route: 058
  12. REMICADE [Suspect]
     Indication: ANKYLOSING SPONDYLITIS
     Dosage: ONCE EVERY 4-6 WEEKS
     Route: 042
     Dates: start: 20060101
  13. HYDROXYQUINOLINE [Concomitant]
     Route: 065
  14. INDERAL [Concomitant]
     Route: 065

REACTIONS (1)
  - MIGRAINE [None]
